FAERS Safety Report 10519770 (Version 1)
Quarter: 2014Q4

REPORT INFORMATION
  Report Type: Spontaneous
  Country: IN (occurrence: IN)
  Receive Date: 20141015
  Receipt Date: 20141015
  Transmission Date: 20150528
  Serious: Yes (Other)
  Sender: FDA-Public Use
  Company Number: IN-ROXANE LABORATORIES, INC.-2014-BI-48414GD

PATIENT
  Age: 18 Year
  Sex: Male

DRUGS (3)
  1. LITHIUM [Suspect]
     Active Substance: LITHIUM CARBONATE
     Indication: OBSESSIVE-COMPULSIVE DISORDER
     Dosage: 900 MG
     Route: 065
  2. SERTRALINE [Suspect]
     Active Substance: SERTRALINE HYDROCHLORIDE
     Dosage: STARTED ON 25 MG AND HIKED TO 150 MG OVER 4 WEEKS
     Route: 065
  3. SERTRALINE [Suspect]
     Active Substance: SERTRALINE HYDROCHLORIDE
     Indication: OBSESSIVE-COMPULSIVE DISORDER
     Dosage: 150 MG
     Route: 065

REACTIONS (3)
  - Tremor [Unknown]
  - Headache [Unknown]
  - Obsessive-compulsive disorder [Unknown]
